FAERS Safety Report 9169192 (Version 2)
Quarter: 2013Q2

REPORT INFORMATION
  Report Type: Spontaneous
  Country: JP (occurrence: JP)
  Receive Date: 20130318
  Receipt Date: 20130402
  Transmission Date: 20140414
  Serious: Yes (Other)
  Sender: FDA-Public Use
  Company Number: JP-ROCHE-1201005

PATIENT
  Age: 7 Decade
  Sex: Female

DRUGS (8)
  1. CELLCEPT [Suspect]
     Indication: GRAFT VERSUS HOST DISEASE IN SKIN
     Dosage: DOSAGE IS UNCERTAIN
     Route: 048
     Dates: start: 201007
  2. CELLCEPT [Suspect]
     Indication: OFF LABEL USE
  3. TACROLIMUS HYDRATE [Suspect]
     Indication: PROPHYLAXIS AGAINST GRAFT VERSUS HOST DISEASE
     Dosage: DOSAGE IS UNCERTAIN
     Route: 065
  4. TACROLIMUS HYDRATE [Suspect]
     Indication: GRAFT VERSUS HOST DISEASE IN SKIN
     Dosage: DOSAGE IS UNCERTAIN
     Route: 065
     Dates: start: 201007
  5. PREDNISOLONE [Suspect]
     Indication: GRAFT VERSUS HOST DISEASE IN SKIN
     Dosage: DOSAGE IS UNCERTAIN
     Route: 065
     Dates: start: 201001
  6. FLUDARABINE PHOSPHATE [Concomitant]
     Indication: ACUTE LYMPHOCYTIC LEUKAEMIA
     Route: 065
  7. BUSULFAN [Concomitant]
     Indication: ACUTE LYMPHOCYTIC LEUKAEMIA
     Route: 065
  8. METHOTREXATE [Concomitant]
     Indication: PROPHYLAXIS AGAINST GRAFT VERSUS HOST DISEASE
     Dosage: DOSAGE IS UNCERTAIN
     Route: 065

REACTIONS (4)
  - Pleural infection bacterial [Unknown]
  - Cytomegalovirus gastroenteritis [Unknown]
  - Endometrial adenocarcinoma [Unknown]
  - Leiomyoma [Unknown]
